FAERS Safety Report 11970120 (Version 2)
Quarter: 2016Q1

REPORT INFORMATION
  Report Type: Spontaneous
  Country: IL (occurrence: IL)
  Receive Date: 20160128
  Receipt Date: 20160222
  Transmission Date: 20160526
  Serious: Yes (Other)
  Sender: FDA-Public Use
  Company Number: IL-BAYER-2016-014832

PATIENT
  Age: 42 Year
  Sex: Female

DRUGS (2)
  1. YASMIN [Suspect]
     Active Substance: DROSPIRENONE\ETHINYL ESTRADIOL
     Dosage: UNK
     Route: 048
  2. GYNERA [Suspect]
     Active Substance: ETHINYL ESTRADIOL\GESTODENE
     Route: 048

REACTIONS (1)
  - Chronic myeloid leukaemia [Not Recovered/Not Resolved]
